FAERS Safety Report 10183983 (Version 1)
Quarter: 2014Q2

REPORT INFORMATION
  Report Type: Report from Study
  Country: US (occurrence: US)
  Receive Date: 20140520
  Receipt Date: 20140520
  Transmission Date: 20141212
  Serious: Yes (Other)
  Sender: FDA-Public Use
  Company Number: US-ASTRAZENECA-2014SE30708

PATIENT
  Sex: Female

DRUGS (2)
  1. TOPROL XL [Suspect]
     Indication: HYPERTENSION
     Route: 048
  2. TOPROL XL [Suspect]
     Indication: HYPERTENSION
     Dosage: GENERIC FORM
     Route: 048

REACTIONS (12)
  - Cataract [Unknown]
  - Fall [Unknown]
  - Ligament rupture [Unknown]
  - Tendon injury [Unknown]
  - Drug ineffective [Unknown]
  - Glaucoma [Unknown]
  - Blood pressure increased [Unknown]
  - Accident at work [Unknown]
  - Arthralgia [Unknown]
  - Headache [Unknown]
  - Extra dose administered [Unknown]
  - Drug dose omission [Unknown]
